FAERS Safety Report 5249998-2 (Version None)
Quarter: 2007Q1

REPORT INFORMATION
  Report Type: 
  Country: None (occurrence: None)
  Receive Date: 20070228
  Receipt Date: 20060206
  Transmission Date: 20070707
  Serious: No
  Sender: FDA-Public Use
  Company Number: US-GLAXOSMITHKLINE-A0590077A

PATIENT
  Age: 33 Year
  Sex: Female
  Weight: 70.5 kg

DRUGS (3)
  1. LAMICTAL [Suspect]
     Dosage: 50MG PER DAY
     Route: 048
     Dates: start: 20051201, end: 20060116
  2. ZOLOFT [Concomitant]
     Dates: start: 20040101
  3. LEVOXYL [Concomitant]
     Indication: HYPOTHYROIDISM
     Dates: start: 19810101

REACTIONS (4)
  - DEPRESSION [None]
  - HOT FLUSH [None]
  - NAUSEA [None]
  - VOMITING [None]
